FAERS Safety Report 6765087-X (Version None)
Quarter: 2010Q2

REPORT INFORMATION
  Report Type: 
  Country: None (occurrence: None)
  Receive Date: 20100609
  Receipt Date: 20100609
  Transmission Date: 20101027
  Serious: Yes (Other)
  Sender: FDA-Public Use
  Company Number: None

PATIENT
  Age: 38 Year
  Sex: Female
  Weight: 82.5547 kg

DRUGS (3)
  1. LEVOTHYROXINE SODIUM [Suspect]
     Indication: BLOOD THYROID STIMULATING HORMONE INCREASED
     Dosage: 1 TABLET DAILY PO
     Route: 048
     Dates: start: 20100529, end: 20100607
  2. LEVOXYL [Suspect]
  3. SYNTHROID [Suspect]

REACTIONS (8)
  - DISCOMFORT [None]
  - DRUG HYPERSENSITIVITY [None]
  - DRUG INEFFECTIVE [None]
  - PAIN [None]
  - PRODUCT SUBSTITUTION ISSUE [None]
  - PRURITUS [None]
  - RASH [None]
  - URTICARIA [None]
